FAERS Safety Report 9197677 (Version 2)
Quarter: 2013Q2

REPORT INFORMATION
  Report Type: Spontaneous
  Country: US (occurrence: US)
  Receive Date: 20130328
  Receipt Date: 20130403
  Transmission Date: 20140414
  Serious: No
  Sender: FDA-Public Use
  Company Number: US-TEVA-394178USA

PATIENT
  Sex: 0

DRUGS (1)
  1. LISINOPRIL [Suspect]

REACTIONS (2)
  - Syncope [Unknown]
  - Dizziness [Unknown]
